FAERS Safety Report 4901813-X (Version None)
Quarter: 2006Q1

REPORT INFORMATION
  Report Type: 
  Country: None (occurrence: None)
  Receive Date: 20060201
  Receipt Date: 20060201
  Transmission Date: 20060701
  Serious: Yes (Life-Threatening)
  Sender: FDA-Public Use
  Company Number: None

PATIENT
  Sex: Male
  Weight: 107.9 kg

DRUGS (2)
  1. FENTANYL [Suspect]
     Indication: CORONARY ANGIOPLASTY
     Dosage: 50 MCG IV
     Dates: start: 20060131, end: 20060131
  2. MIDAZOLAM HCL [Suspect]
     Indication: CORONARY ANGIOPLASTY
     Dosage: 2 MG IV
     Route: 042
     Dates: start: 20060131, end: 20060131

REACTIONS (1)
  - ANAPHYLACTIC REACTION [None]
